FAERS Safety Report 8170604-1 (Version None)
Quarter: 2012Q1

REPORT INFORMATION
  Report Type: 
  Country: None (occurrence: None)
  Receive Date: 20120228
  Receipt Date: 20120220
  Transmission Date: 20120608
  Serious: Yes (Death, Life-Threatening, Other)
  Sender: FDA-Public Use
  Company Number: AU-ROCHE-1035321

PATIENT
  Sex: Female
  Weight: 102 kg

DRUGS (10)
  1. ACIMAX [Concomitant]
     Route: 048
     Dates: start: 20060101, end: 20120107
  2. MOBIC [Concomitant]
     Indication: RHEUMATOID ARTHRITIS
     Route: 048
     Dates: start: 20050101, end: 20120107
  3. SLOW-K [Concomitant]
  4. ACTEMRA [Suspect]
     Indication: RHEUMATOID ARTHRITIS
     Route: 042
     Dates: start: 20110701, end: 20110801
  5. METHOTREXATE [Suspect]
     Indication: RHEUMATOID ARTHRITIS
     Dosage: DOSE:12.5
     Route: 048
     Dates: start: 20020101, end: 20120107
  6. ACETAMINOPHEN [Concomitant]
  7. ARAVA [Suspect]
     Indication: RHEUMATOID ARTHRITIS
     Dosage: ALTERNATE DAYS
     Route: 048
     Dates: start: 20030101, end: 20120107
  8. ISOPTIN [Concomitant]
     Route: 048
     Dates: start: 20110101, end: 20120107
  9. PREDNISOLONE [Concomitant]
     Indication: RHEUMATOID ARTHRITIS
     Route: 048
     Dates: start: 20020101, end: 20120107
  10. FOSAMAX [Concomitant]

REACTIONS (4)
  - NEUTROPENIA [None]
  - MENINGIOMA [None]
  - PURPURA [None]
  - ANHEDONIA [None]
